FAERS Safety Report 4435110-6 (Version None)
Quarter: 2004Q3

REPORT INFORMATION
  Report Type: 
  Country: None (occurrence: None)
  Receive Date: 20040826
  Receipt Date: 20040826
  Transmission Date: 20050211
  Serious: Yes (Hospitalization)
  Sender: FDA-Public Use
  Company Number: None

PATIENT
  Age: 63 Year
  Sex: Male
  Weight: 86.4 kg

DRUGS (3)
  1. LISINOPRIL AND HYDROCHLOROTHIAZIDE [Suspect]
     Indication: HYPERTENSION
     Dosage: 1 TABLET DAILY ORAL
     Route: 048
     Dates: start: 20040616, end: 20040624
  2. OMEPRAZOLE [Concomitant]
  3. GEMFIBROZIL [Concomitant]

REACTIONS (3)
  - DYSKINESIA [None]
  - DYSPHAGIA [None]
  - TONGUE OEDEMA [None]
